FAERS Safety Report 14159088 (Version 1)
Quarter: 2017Q4

REPORT INFORMATION
  Report Type: Spontaneous
  Country: US (occurrence: US)
  Receive Date: 20171103
  Receipt Date: 20171103
  Transmission Date: 20180321
  Serious: Yes (Other)
  Sender: FDA-Public Use
  Company Number: US-AMGEN-USASP2017163588

PATIENT
  Age: 78 Year
  Sex: Male

DRUGS (1)
  1. REPATHA [Suspect]
     Active Substance: EVOLOCUMAB
     Indication: PRODUCT USED FOR UNKNOWN INDICATION
     Dosage: UNK
     Route: 065
     Dates: start: 20171024

REACTIONS (3)
  - Influenza like illness [Recovering/Resolving]
  - Haemoptysis [Recovering/Resolving]
  - Feeling abnormal [Recovering/Resolving]

NARRATIVE: CASE EVENT DATE: 20171024
